FAERS Safety Report 20528042 (Version 1)
Quarter: 2022Q1

REPORT INFORMATION
  Report Type: Spontaneous
  Country: US (occurrence: US)
  Receive Date: 20220228
  Receipt Date: 20220228
  Transmission Date: 20220423
  Serious: Yes (Other)
  Sender: FDA-Public Use
  Company Number: US-NOVARTISPH-NVSC2022US046986

PATIENT
  Age: 32 Year
  Sex: Male

DRUGS (2)
  1. RANITIDINE [Suspect]
     Active Substance: RANITIDINE
     Indication: Dyspepsia
     Dosage: UNKNOWN AT THIS TIME,,PERIODS OF NON-USE (AT LEAST 3 MONTHS WITHOUT USE),
     Route: 048
     Dates: start: 198012, end: 200601
  2. RANITIDINE [Suspect]
     Active Substance: RANITIDINE
     Indication: Dyspepsia
     Dosage: UNKNOWN AT THIS TIME,,PERIODS OF NON-USE (AT LEAST 3 MONTHS WITHOUT USE),
     Route: 048
     Dates: start: 198012, end: 200601

REACTIONS (5)
  - Prostate cancer [Recovering/Resolving]
  - Injury [Unknown]
  - Incorrect dose administered [Unknown]
  - Inappropriate schedule of product administration [Unknown]
  - Product use in unapproved indication [Unknown]

NARRATIVE: CASE EVENT DATE: 19930901
